FAERS Safety Report 22300668 (Version 26)
Quarter: 2025Q3

REPORT INFORMATION
  Report Type: Spontaneous
  Country: US (occurrence: US)
  Receive Date: 20230509
  Receipt Date: 20250715
  Transmission Date: 20251020
  Serious: Yes (Disabling, Other)
  Sender: AMGEN
  Company Number: US-HORIZON THERAPEUTICS-HZN-2023-003380

PATIENT
  Age: 62 Year
  Sex: Male
  Weight: 96 kg

DRUGS (86)
  1. TEPEZZA [Suspect]
     Active Substance: TEPROTUMUMAB-TRBW
     Indication: Endocrine ophthalmopathy
     Route: 042
     Dates: start: 20210812
  2. TEPEZZA [Suspect]
     Active Substance: TEPROTUMUMAB-TRBW
     Indication: Graves^ disease
     Route: 042
     Dates: start: 20210902
  3. TEPEZZA [Suspect]
     Active Substance: TEPROTUMUMAB-TRBW
     Route: 042
     Dates: start: 20210923
  4. TEPEZZA [Suspect]
     Active Substance: TEPROTUMUMAB-TRBW
     Route: 042
     Dates: start: 20211014
  5. PREDNISONE [Suspect]
     Active Substance: PREDNISONE
     Indication: Product used for unknown indication
     Route: 048
     Dates: start: 20140411
  6. RANOLAZINE [Concomitant]
     Active Substance: RANOLAZINE
     Dosage: 1000 MILLIGRAM, BID
     Route: 048
  7. TOPROL XL [Concomitant]
     Active Substance: METOPROLOL SUCCINATE
     Dosage: 100 MILLIGRAM, QD
     Route: 048
  8. AMITRIPTYLINE [Concomitant]
     Active Substance: AMITRIPTYLINE
     Route: 048
  9. AMITRIPTYLINE [Concomitant]
     Active Substance: AMITRIPTYLINE
     Dosage: 25 MILLIGRAM, QD
     Route: 048
  10. ASPIRIN [Concomitant]
     Active Substance: ASPIRIN
     Dosage: UNK, QD
     Route: 048
  11. NORVASC [Concomitant]
     Active Substance: AMLODIPINE BESYLATE
     Dosage: 5 MILLIGRAM, QD
     Route: 048
  12. LISINOPRIL [Concomitant]
     Active Substance: LISINOPRIL
     Dosage: 20 MILLIGRAM, QD
     Route: 048
  13. LISINOPRIL [Concomitant]
     Active Substance: LISINOPRIL
     Dosage: 2.5 MILLIGRAM, QD
     Route: 048
  14. LIPITOR [Concomitant]
     Active Substance: ATORVASTATIN CALCIUM
     Dosage: 40 MILLIGRAM, QD
     Route: 048
  15. ERYTHROMYCIN [Concomitant]
     Active Substance: ERYTHROMYCIN
     Route: 047
  16. GABAPENTIN [Concomitant]
     Active Substance: GABAPENTIN
     Dosage: 800 MILLIGRAM, TID
     Route: 048
  17. METHIMAZOLE [Concomitant]
     Active Substance: METHIMAZOLE
     Dosage: 5 MILLIGRAM
     Route: 048
  18. METHIMAZOLE [Concomitant]
     Active Substance: METHIMAZOLE
     Dosage: 10 MILLIGRAM, QD
     Route: 048
  19. METHIMAZOLE [Concomitant]
     Active Substance: METHIMAZOLE
     Route: 048
  20. METHIMAZOLE [Concomitant]
     Active Substance: METHIMAZOLE
     Route: 048
  21. NAPROXEN [Concomitant]
     Active Substance: NAPROXEN
     Dosage: 375 MILLIGRAM, BID
     Route: 048
  22. NITROGLYCERIN [Concomitant]
     Active Substance: NITROGLYCERIN
     Route: 060
  23. NITROGLYCERIN [Concomitant]
     Active Substance: NITROGLYCERIN
     Route: 060
  24. AMMONIUM LACTATE [Concomitant]
     Active Substance: AMMONIUM LACTATE
     Route: 065
  25. IMDUR [Concomitant]
     Active Substance: ISOSORBIDE MONONITRATE
     Dosage: 30 MILLIGRAM, QD
     Route: 048
     Dates: end: 20210824
  26. IMDUR [Concomitant]
     Active Substance: ISOSORBIDE MONONITRATE
     Dosage: 120 MILLIGRAM, QD
     Route: 048
  27. SYNTHROID [Concomitant]
     Active Substance: LEVOTHYROXINE SODIUM
     Route: 065
     Dates: start: 20200803, end: 20210824
  28. VITAMINS [Concomitant]
     Active Substance: VITAMINS
     Dosage: UNK, QD
     Route: 048
     Dates: end: 20210824
  29. FLUZONE [Concomitant]
     Active Substance: INFLUENZA VIRUS VACCINE
     Route: 065
  30. DICLOFENAC SODIUM [Concomitant]
     Active Substance: DICLOFENAC SODIUM
     Route: 065
  31. COVID-19 vaccine [Concomitant]
     Route: 065
  32. FLUAD QUADRIVALENT NOS [Concomitant]
     Active Substance: INFLUENZA A VIRUS A/HONG KONG/2671/2019 IVR-208 (H3N2) ANTIGEN (FORMALDEHYDE INACTIVATED)\INFLUENZA
     Route: 065
  33. MUPIROCIN [Concomitant]
     Active Substance: MUPIROCIN
     Route: 061
     Dates: start: 20230502
  34. METHYLPREDNISOLONE [Concomitant]
     Active Substance: METHYLPREDNISOLONE
     Route: 048
  35. HYDROMORPHONE [Concomitant]
     Active Substance: HYDROMORPHONE
     Route: 048
  36. OXYCODONE [Concomitant]
     Active Substance: OXYCODONE
     Route: 048
  37. BACLOFEN [Concomitant]
     Active Substance: BACLOFEN
     Route: 048
  38. PAXLOVID [Concomitant]
     Active Substance: NIRMATRELVIR\RITONAVIR
     Route: 065
  39. AREXVY [Concomitant]
     Active Substance: RECOMBINANT RESPIRATORY SYNCYTIAL VIRUS PRE-FUSION F PROTEIN ANTIGEN
     Route: 065
  40. Comirnaty [Concomitant]
     Route: 065
  41. OMEPRAZOLE [Concomitant]
     Active Substance: OMEPRAZOLE
     Dosage: 40 MILLIGRAM, QD
     Route: 048
     Dates: start: 20240503
  42. OMEPRAZOLE [Concomitant]
     Active Substance: OMEPRAZOLE
     Dosage: 20 MILLIGRAM, QD
     Route: 048
  43. DOXYCYCLINE HYCLATE [Concomitant]
     Active Substance: DOXYCYCLINE HYCLATE
     Dosage: 50 MILLIGRAM, BID
     Route: 048
  44. AMBIEN [Concomitant]
     Active Substance: ZOLPIDEM TARTRATE
     Dosage: 10 MILLIGRAM, QD
     Route: 048
  45. MAXITROL [Concomitant]
     Active Substance: DEXAMETHASONE\NEOMYCIN SULFATE\POLYMYXIN B SULFATE
     Dosage: UNK, TID
     Route: 047
  46. TOBRADEX [Concomitant]
     Active Substance: DEXAMETHASONE\TOBRAMYCIN
     Dosage: UNK, BID
     Route: 047
  47. XYLOCAINE [Concomitant]
     Active Substance: LIDOCAINE HYDROCHLORIDE
     Route: 065
  48. EPINEPHRINE [Concomitant]
     Active Substance: EPINEPHRINE
     Route: 065
  49. VICODIN [Concomitant]
     Active Substance: ACETAMINOPHEN\HYDROCODONE BITARTRATE
     Route: 065
  50. ASPIRIN [Concomitant]
     Active Substance: ASPIRIN
     Dosage: 81 MILLIGRAM, QD
     Route: 048
  51. METOPROLOL SUCCINATE [Concomitant]
     Active Substance: METOPROLOL SUCCINATE
     Dosage: 100 MILLIGRAM, QD
     Route: 048
  52. METOPROLOL SUCCINATE [Concomitant]
     Active Substance: METOPROLOL SUCCINATE
     Route: 048
  53. ATORVASTATIN [Concomitant]
     Active Substance: ATORVASTATIN
     Route: 048
  54. AMLODIPINE [Concomitant]
     Active Substance: AMLODIPINE BESYLATE
     Route: 048
  55. AMLODIPINE [Concomitant]
     Active Substance: AMLODIPINE BESYLATE
     Dosage: 5 MILLIGRAM, QD
     Route: 048
  56. METAMUCIL [Concomitant]
     Active Substance: PLANTAGO SEED
     Route: 048
  57. MIRALAX [Concomitant]
     Active Substance: POLYETHYLENE GLYCOL 3350
     Route: 065
  58. FIBER THERAPY (CALCIUM POLYCARBOPHIL) [Concomitant]
     Active Substance: CALCIUM POLYCARBOPHIL
     Route: 065
  59. COLACE [Concomitant]
     Active Substance: DOCUSATE SODIUM
     Dosage: UNK UNK, QD
     Route: 065
  60. Dulcolax [Concomitant]
     Route: 065
     Dates: start: 20240503
  61. LIDOCAINE [Concomitant]
     Active Substance: LIDOCAINE
     Route: 065
  62. CEFUROXIME AXETIL [Concomitant]
     Active Substance: CEFUROXIME AXETIL
     Route: 048
  63. CIPRO [Concomitant]
     Active Substance: CIPROFLOXACIN HYDROCHLORIDE
     Route: 065
     Dates: start: 20240411
  64. MEDROL [Concomitant]
     Active Substance: METHYLPREDNISOLONE
     Route: 048
     Dates: start: 20140428
  65. OFLOXACIN [Concomitant]
     Active Substance: OFLOXACIN
     Dosage: 5 GTT DROPS, BID IN AFFECTED EAR
     Route: 065
     Dates: start: 20140327
  66. ZOFRAN [Concomitant]
     Active Substance: ONDANSETRON HYDROCHLORIDE
     Indication: Nausea
     Route: 048
  67. ZOFRAN [Concomitant]
     Active Substance: ONDANSETRON HYDROCHLORIDE
     Indication: Vomiting
  68. DECADRON [Concomitant]
     Active Substance: DEXAMETHASONE
     Route: 040
     Dates: start: 20230628
  69. SUBLIMAZE [Concomitant]
     Active Substance: FENTANYL CITRATE
     Route: 040
     Dates: start: 20230628
  70. ZEMURON [Concomitant]
     Active Substance: ROCURONIUM BROMIDE
     Route: 040
     Dates: start: 20230628
  71. ANCEF [Concomitant]
     Active Substance: CEFAZOLIN SODIUM
     Route: 040
  72. VANCOMYCIN [Concomitant]
     Active Substance: VANCOMYCIN
     Route: 040
     Dates: start: 20230628
  73. EPHEDRINE [Concomitant]
     Active Substance: EPHEDRINE
     Route: 040
     Dates: start: 20230628
  74. EPHEDRINE [Concomitant]
     Active Substance: EPHEDRINE
     Route: 040
     Dates: start: 20230628
  75. BRIDION [Concomitant]
     Active Substance: SUGAMMADEX SODIUM
     Route: 040
     Dates: start: 20230628
  76. KETAMINE [Concomitant]
     Active Substance: KETAMINE
     Route: 040
     Dates: start: 20230628
  77. SODIUM CHLORIDE [Concomitant]
     Active Substance: SODIUM CHLORIDE
     Route: 040
     Dates: start: 20230628
  78. SODIUM CHLORIDE [Concomitant]
     Active Substance: SODIUM CHLORIDE
     Route: 040
     Dates: start: 20230628
  79. SODIUM CHLORIDE [Concomitant]
     Active Substance: SODIUM CHLORIDE
     Route: 040
     Dates: start: 20230628
  80. PLASMA-LYTE A [Concomitant]
     Active Substance: MAGNESIUM CHLORIDE\POTASSIUM CHLORIDE\SODIUM ACETATE\SODIUM CHLORIDE\SODIUM GLUCONATE
     Route: 040
     Dates: start: 20230628
  81. PLASMA-LYTE A [Concomitant]
     Active Substance: MAGNESIUM CHLORIDE\POTASSIUM CHLORIDE\SODIUM ACETATE\SODIUM CHLORIDE\SODIUM GLUCONATE
     Route: 040
     Dates: start: 20230628
  82. VIGAMOX [Concomitant]
     Active Substance: MOXIFLOXACIN HYDROCHLORIDE
     Route: 065
  83. ISOSORBIDE MONONITRATE [Concomitant]
     Active Substance: ISOSORBIDE MONONITRATE
     Route: 048
  84. MIDAZOLAM [Concomitant]
     Active Substance: MIDAZOLAM
     Route: 040
     Dates: start: 20160726
  85. FENTANYL [Concomitant]
     Active Substance: FENTANYL
     Route: 040
     Dates: start: 20160726
  86. MIEBO [Concomitant]
     Active Substance: PERFLUOROHEXYLOCTANE
     Dosage: 1.338 GRAM PER MILLILITRE, QID
     Route: 047

REACTIONS (53)
  - Physical disability [Not Recovered/Not Resolved]
  - Disability [Not Recovered/Not Resolved]
  - Deafness permanent [Not Recovered/Not Resolved]
  - Barrett^s oesophagus [Unknown]
  - Gastric ulcer [Unknown]
  - Ischaemic demyelination [Unknown]
  - Mastoiditis [Unknown]
  - Sinus disorder [Unknown]
  - Anxiety [Not Recovered/Not Resolved]
  - Balance disorder [Unknown]
  - Benign neoplasm of skin [Unknown]
  - Beta 2 microglobulin increased [Unknown]
  - Blood alkaline phosphatase decreased [Unknown]
  - Blood creatinine increased [Unknown]
  - Blood immunoglobulin A decreased [Unknown]
  - Blood potassium increased [Unknown]
  - Blood pressure increased [Unknown]
  - Blood sodium decreased [Unknown]
  - Blood urea increased [Unknown]
  - Body temperature fluctuation [Unknown]
  - Bradycardia [Unknown]
  - Chronic gastritis [Unknown]
  - Concomitant disease aggravated [Not Recovered/Not Resolved]
  - Conjunctival oedema [Unknown]
  - Constipation [Unknown]
  - Dacryocystitis [Unknown]
  - Dental caries [Unknown]
  - Dermatochalasis [Unknown]
  - Discomfort [Not Recovered/Not Resolved]
  - Dizziness [Unknown]
  - Ear infection [Unknown]
  - Economic problem [Not Recovered/Not Resolved]
  - Emotional distress [Not Recovered/Not Resolved]
  - Eye movement disorder [Unknown]
  - Eye pain [Unknown]
  - Exposure keratitis [Unknown]
  - Glomerular filtration rate decreased [Unknown]
  - Illness [Unknown]
  - Impaired quality of life [Not Recovered/Not Resolved]
  - Injury [Not Recovered/Not Resolved]
  - Lentigo [Unknown]
  - Neoplasm [Unknown]
  - Light chain analysis increased [Unknown]
  - Lymphocyte count decreased [Unknown]
  - Mean platelet volume decreased [Unknown]
  - Melanocytic naevus [Unknown]
  - Muscle atrophy [Unknown]
  - Pain [Not Recovered/Not Resolved]
  - Pigmentation disorder [Unknown]
  - Product quality issue [Unknown]
  - Seborrhoeic keratosis [Unknown]
  - Ear discomfort [Unknown]
  - Tinnitus [Not Recovered/Not Resolved]

NARRATIVE: CASE EVENT DATE: 20140423
